FAERS Safety Report 4728127-5 (Version None)
Quarter: 2005Q3

REPORT INFORMATION
  Report Type: 
  Country: None (occurrence: None)
  Receive Date: 20050727
  Receipt Date: 20050714
  Transmission Date: 20060218
  Serious: Yes (Other)
  Sender: FDA-Public Use
  Company Number: 2005103444

PATIENT
  Sex: 0

DRUGS (1)
  1. DEPO-MEDROL [Suspect]
     Indication: ILL-DEFINED DISORDER

REACTIONS (2)
  - INCORRECT ROUTE OF DRUG ADMINISTRATION [None]
  - RETINAL DETACHMENT [None]
